FAERS Safety Report 4926711-7 (Version None)
Quarter: 2006Q1

REPORT INFORMATION
  Report Type: 
  Country: None (occurrence: None)
  Receive Date: 20060228
  Receipt Date: 20050601
  Transmission Date: 20060701
  Serious: No
  Sender: FDA-Public Use
  Company Number: US-GLAXOSMITHKLINE-A0560749A

PATIENT
  Age: 40 Year
  Sex: Female

DRUGS (6)
  1. LAMICTAL [Suspect]
     Indication: BIPOLAR DISORDER
     Dosage: 100MG PER DAY
     Route: 048
     Dates: start: 20050301, end: 20050401
  2. ADDERALL 10 [Concomitant]
  3. ASPIRIN [Concomitant]
  4. CELEBREX [Concomitant]
  5. SERZONE [Concomitant]
  6. NOVOLOG [Concomitant]

REACTIONS (6)
  - EYE SWELLING [None]
  - PROTEIN URINE PRESENT [None]
  - PRURITUS [None]
  - RASH [None]
  - SWELLING FACE [None]
  - URTICARIA [None]
